FAERS Safety Report 6757785-9 (Version None)
Quarter: 2010Q2

REPORT INFORMATION
  Report Type: 
  Country: None (occurrence: None)
  Receive Date: 20100604
  Receipt Date: 20100604
  Transmission Date: 20101027
  Serious: Yes (Other)
  Sender: FDA-Public Use
  Company Number: None

PATIENT
  Age: 53 Year
  Sex: Female
  Weight: 49.8957 kg

DRUGS (2)
  1. ZYFLO CR [Suspect]
     Indication: RASH
     Dates: start: 20100522, end: 20100529
  2. ZYFLO CR [Suspect]
     Indication: URTICARIA
     Dates: start: 20100522, end: 20100529

REACTIONS (4)
  - HEADACHE [None]
  - NAUSEA [None]
  - RASH [None]
  - URTICARIA [None]
